FAERS Safety Report 5147323-9 (Version None)
Quarter: 2006Q4

REPORT INFORMATION
  Report Type: 
  Country: None (occurrence: None)
  Receive Date: 20061103
  Receipt Date: 20061019
  Transmission Date: 20070319
  Serious: Yes (Other)
  Sender: FDA-Public Use
  Company Number: US-2006-031837

PATIENT
  Age: 35 Year
  Sex: Female

DRUGS (2)
  1. BETASERON [Suspect]
     Indication: MULTIPLE SCLEROSIS
     Dosage: 8 MIU, EVERY 2D, SUBCUTANEOUS
     Route: 058
     Dates: start: 20051017
  2. SOLU-MEDROL [Suspect]
     Indication: MULTIPLE SCLEROSIS
     Dosage: INTRAVENOUS
     Route: 042
     Dates: start: 20060112, end: 20060114

REACTIONS (8)
  - BONE MARROW DISORDER [None]
  - CONDITION AGGRAVATED [None]
  - GENERALISED ERYTHEMA [None]
  - HYPERSENSITIVITY [None]
  - MULTIPLE SCLEROSIS [None]
  - PAIN [None]
  - PARATHYROID DISORDER [None]
  - SWELLING [None]
